FAERS Safety Report 14402571 (Version 1)
Quarter: 2018Q1

REPORT INFORMATION
  Report Type: Spontaneous
  Country: SA (occurrence: SA)
  Receive Date: 20180116
  Receipt Date: 20180116
  Transmission Date: 20180509
  Serious: Yes (Hospitalization, Disabling)
  Sender: FDA-Public Use
  Company Number: None

PATIENT
  Age: 22 Year
  Sex: Male

DRUGS (1)
  1. CYTARABINE. [Suspect]
     Active Substance: CYTARABINE
     Indication: ACUTE LYMPHOCYTIC LEUKAEMIA
     Dates: start: 20170808, end: 20170809

REACTIONS (6)
  - Somnolence [None]
  - Dysarthria [None]
  - Headache [None]
  - Photophobia [None]
  - Neurotoxicity [None]
  - Movement disorder [None]

NARRATIVE: CASE EVENT DATE: 20170808
